FAERS Safety Report 5373266-1 (Version None)
Quarter: 2007Q2

REPORT INFORMATION
  Report Type: 
  Country: None (occurrence: None)
  Receive Date: 20070626
  Receipt Date: 20070626
  Transmission Date: 20071010
  Serious: Yes (Hospitalization)
  Sender: FDA-Public Use
  Company Number: None

PATIENT
  Age: 74 Year
  Sex: Male

DRUGS (2)
  1. METOPROLOL SUCCINATE [Suspect]
     Indication: HYPERTENSION
     Dosage: 12.5MG EVERY DAY PO
     Route: 048
     Dates: start: 20050217
  2. TERAZOSIN HCL [Suspect]
     Dosage: 10MG EVERY DAY PO
     Route: 048

REACTIONS (3)
  - FALL [None]
  - HYPOTENSION [None]
  - SYNCOPE [None]
